FAERS Safety Report 4366449-0 (Version None)
Quarter: 2004Q2

REPORT INFORMATION
  Report Type: 
  Country: None (occurrence: None)
  Receive Date: 20040527
  Receipt Date: 20040401
  Transmission Date: 20050107
  Serious: Yes (Other)
  Sender: FDA-Public Use
  Company Number: US-BRISTOL-MYERS SQUIBB COMPANY-12548616

PATIENT
  Age: 55 Year
  Sex: Male
  Weight: 38 kg

DRUGS (4)
  1. ERBITUX [Suspect]
     Indication: COLON CANCER METASTATIC
     Dosage: INITIAL DOSE 800 MG ON 18-MAR-2004.  3RD DOSE HELD (01-APR-2004).
     Route: 042
     Dates: start: 20040325, end: 20040325
  2. BENADRYL [Concomitant]
     Indication: PREMEDICATION
  3. TYLENOL [Concomitant]
     Indication: PREMEDICATION
  4. COMPAZINE [Concomitant]
     Indication: PREMEDICATION

REACTIONS (1)
  - RASH [None]
